FAERS Safety Report 9969365 (Version 3)
Quarter: 2014Q2

REPORT INFORMATION
  Report Type: Spontaneous
  Country: IT (occurrence: IT)
  Receive Date: 20140306
  Receipt Date: 20140425
  Transmission Date: 20141212
  Serious: Yes (Hospitalization)
  Sender: FDA-Public Use
  Company Number: IT-ASTRAZENECA-2014SE13143

PATIENT
  Age: 14225 Day
  Sex: Female

DRUGS (31)
  1. SEROQUEL [Suspect]
     Indication: DRUG ABUSE
     Dosage: 300 + 300 MG / DAILY
     Route: 048
     Dates: start: 20130705, end: 201401
  2. SEROQUEL [Suspect]
     Indication: AFFECTIVE DISORDER
     Dosage: 300 + 300 MG / DAILY
     Route: 048
     Dates: start: 20130705, end: 201401
  3. SEROQUEL [Suspect]
     Indication: SUICIDE ATTEMPT
     Dosage: 300 + 300 MG / DAILY
     Route: 048
     Dates: start: 20130705, end: 201401
  4. SEROQUEL [Suspect]
     Indication: DRUG ABUSE
     Dosage: QUETIAPINE TEVA, 200 MG DAILY
     Route: 048
     Dates: start: 20131029, end: 201401
  5. SEROQUEL [Suspect]
     Indication: AFFECTIVE DISORDER
     Dosage: QUETIAPINE TEVA, 200 MG DAILY
     Route: 048
     Dates: start: 20131029, end: 201401
  6. SEROQUEL [Suspect]
     Indication: SUICIDE ATTEMPT
     Dosage: QUETIAPINE TEVA, 200 MG DAILY
     Route: 048
     Dates: start: 20131029, end: 201401
  7. SEROQUEL [Suspect]
     Indication: DRUG ABUSE
     Dosage: QUETIAPINE TEVA, 200 + 400 MG DAILY
     Route: 048
     Dates: start: 201401, end: 20140219
  8. SEROQUEL [Suspect]
     Indication: AFFECTIVE DISORDER
     Dosage: QUETIAPINE TEVA, 200 + 400 MG DAILY
     Route: 048
     Dates: start: 201401, end: 20140219
  9. SEROQUEL [Suspect]
     Indication: SUICIDE ATTEMPT
     Dosage: QUETIAPINE TEVA, 200 + 400 MG DAILY
     Route: 048
     Dates: start: 201401, end: 20140219
  10. SEROQUEL [Suspect]
     Indication: DRUG ABUSE
     Route: 048
     Dates: start: 20140214, end: 20140214
  11. SEROQUEL [Suspect]
     Indication: AFFECTIVE DISORDER
     Route: 048
     Dates: start: 20140214, end: 20140214
  12. SEROQUEL [Suspect]
     Indication: SUICIDE ATTEMPT
     Route: 048
     Dates: start: 20140214, end: 20140214
  13. SEROQUEL [Suspect]
     Indication: DRUG ABUSE
     Dosage: QUETIAPINE TEVA, 50 DF
     Route: 048
     Dates: start: 20140214, end: 20140214
  14. SEROQUEL [Suspect]
     Indication: AFFECTIVE DISORDER
     Dosage: QUETIAPINE TEVA, 50 DF
     Route: 048
     Dates: start: 20140214, end: 20140214
  15. SEROQUEL [Suspect]
     Indication: SUICIDE ATTEMPT
     Dosage: QUETIAPINE TEVA, 50 DF
     Route: 048
     Dates: start: 20140214, end: 20140214
  16. DEPAKIN CHRONO [Suspect]
     Indication: DRUG ABUSE
     Dosage: 300+300MG /DAILY
     Route: 048
     Dates: end: 201311
  17. DEPAKIN CHRONO [Suspect]
     Indication: AFFECTIVE DISORDER
     Dosage: 300+300MG /DAILY
     Route: 048
     Dates: end: 201311
  18. DEPAKIN CHRONO [Suspect]
     Indication: SUICIDE ATTEMPT
     Dosage: 300+300MG /DAILY
     Route: 048
     Dates: end: 201311
  19. DEPAKIN CHRONO [Suspect]
     Indication: DRUG ABUSE
     Route: 048
     Dates: start: 20140214, end: 20140214
  20. DEPAKIN CHRONO [Suspect]
     Indication: AFFECTIVE DISORDER
     Route: 048
     Dates: start: 20140214, end: 20140214
  21. DEPAKIN CHRONO [Suspect]
     Indication: SUICIDE ATTEMPT
     Route: 048
     Dates: start: 20140214, end: 20140214
  22. EN [Suspect]
     Indication: DRUG ABUSE
     Route: 048
     Dates: start: 20140214, end: 20140214
  23. EN [Suspect]
     Indication: AFFECTIVE DISORDER
     Route: 048
     Dates: start: 20140214, end: 20140214
  24. EN [Suspect]
     Indication: SUICIDE ATTEMPT
     Route: 048
     Dates: start: 20140214, end: 20140214
  25. EN [Suspect]
     Indication: DRUG ABUSE
     Dosage: 2+2+2 MG /DAILY
     Route: 048
  26. EN [Suspect]
     Indication: AFFECTIVE DISORDER
     Dosage: 2+2+2 MG /DAILY
     Route: 048
  27. EN [Suspect]
     Indication: SUICIDE ATTEMPT
     Dosage: 2+2+2 MG /DAILY
     Route: 048
  28. EN [Suspect]
     Indication: DRUG ABUSE
     Dosage: 1MG X 2
     Route: 048
     Dates: start: 20140304
  29. EN [Suspect]
     Indication: AFFECTIVE DISORDER
     Dosage: 1MG X 2
     Route: 048
     Dates: start: 20140304
  30. EN [Suspect]
     Indication: SUICIDE ATTEMPT
     Dosage: 1MG X 2
     Route: 048
     Dates: start: 20140304
  31. PAROXETINE [Concomitant]
     Indication: AFFECTIVE DISORDER
     Route: 048
     Dates: start: 201401, end: 20140219

REACTIONS (2)
  - Sopor [Recovered/Resolved]
  - Drug abuse [Recovered/Resolved]
